FAERS Safety Report 11327963 (Version 1)
Quarter: 2015Q3

REPORT INFORMATION
  Report Type: Spontaneous
  Country: US (occurrence: US)
  Receive Date: 20150731
  Receipt Date: 20150731
  Transmission Date: 20151125
  Serious: No
  Sender: FDA-Public Use
  Company Number: US-TARO-2014TAR00142

PATIENT
  Age: 73 Year
  Sex: Female
  Weight: 48.98 kg

DRUGS (2)
  1. FLUOCINONIDE CREAM USP 0.05% [Suspect]
     Active Substance: FLUOCINONIDE
     Indication: DERMATITIS CONTACT
     Dosage: UNK, 1X/DAY
     Route: 061
     Dates: start: 20140707, end: 20140708
  2. AMLODIPINE [Concomitant]
     Active Substance: AMLODIPINE BESYLATE
     Dosage: 5 MG, 1X/DAY
     Dates: start: 2012

REACTIONS (4)
  - Dermatitis contact [Recovering/Resolving]
  - Application site irritation [Recovering/Resolving]
  - Rash [Recovering/Resolving]
  - Drug ineffective [Not Recovered/Not Resolved]

NARRATIVE: CASE EVENT DATE: 20140708
